FAERS Safety Report 17201735 (Version 9)
Quarter: 2022Q4

REPORT INFORMATION
  Report Type: Spontaneous
  Country: US (occurrence: US)
  Receive Date: 20191226
  Receipt Date: 20221114
  Transmission Date: 20230112
  Serious: Yes (Other)
  Sender: FDA-Public Use
  Company Number: US-PFIZER INC-2019552271

PATIENT
  Age: 85 Year
  Sex: Female
  Weight: 68.02 kg

DRUGS (3)
  1. XELJANZ [Suspect]
     Active Substance: TOFACITINIB CITRATE
     Indication: Rheumatoid arthritis
     Dosage: 5 MG, 2X/DAY
  2. XELJANZ [Suspect]
     Active Substance: TOFACITINIB CITRATE
     Indication: Osteoarthritis
     Dosage: 2.5 MG
  3. XELJANZ [Suspect]
     Active Substance: TOFACITINIB CITRATE
     Dosage: 10 MG, DAILY (2 TABLETS DAILY)

REACTIONS (6)
  - Ankle fracture [Recovered/Resolved]
  - Macular degeneration [Unknown]
  - Intentional product misuse [Unknown]
  - Condition aggravated [Unknown]
  - Arthritis [Unknown]
  - Memory impairment [Unknown]
